FAERS Safety Report 9295263 (Version 1)
Quarter: 2013Q2

REPORT INFORMATION
  Report Type: Spontaneous
  Country: US (occurrence: US)
  Receive Date: 20130517
  Receipt Date: 20130517
  Transmission Date: 20140414
  Serious: No
  Sender: FDA-Public Use
  Company Number: US-009507513-1305USA010329

PATIENT
  Sex: Female

DRUGS (6)
  1. JANUVIA [Suspect]
     Dosage: UNK
  2. LEVEMIR [Concomitant]
     Dosage: UNK, QD
     Dates: start: 2012
  3. LANTUS [Concomitant]
  4. METFORMIN [Concomitant]
     Dosage: UNK, BID
     Dates: start: 2003
  5. LIPITOR [Concomitant]
     Dosage: UNK
  6. INSULIN [Concomitant]

REACTIONS (6)
  - Hyperhidrosis [Unknown]
  - Hypoglycaemia [Unknown]
  - Nervousness [Unknown]
  - Hypogeusia [Recovered/Resolved]
  - Decreased appetite [Unknown]
  - Blood glucose decreased [Unknown]
